FAERS Safety Report 16114550 (Version 2)
Quarter: 2019Q2

REPORT INFORMATION
  Report Type: Spontaneous
  Country: FR (occurrence: FR)
  Receive Date: 20190325
  Receipt Date: 20190402
  Transmission Date: 20190711
  Serious: Yes (Hospitalization)
  Sender: FDA-Public Use
  Company Number: FR-ASTRAZENECA-2019SE46166

PATIENT
  Sex: Male
  Weight: 80 kg

DRUGS (4)
  1. NALOXEGOL [Suspect]
     Active Substance: NALOXEGOL
     Indication: CONSTIPATION
     Route: 048
     Dates: start: 20190105, end: 20190105
  2. PREGABALIN. [Concomitant]
     Active Substance: PREGABALIN
  3. SKENAN [Concomitant]
     Active Substance: MORPHINE SULFATE
  4. ACTISKENAN [Concomitant]
     Active Substance: MORPHINE SULFATE

REACTIONS (3)
  - Nausea [Recovering/Resolving]
  - Dizziness [Recovering/Resolving]
  - Intestinal obstruction [Recovering/Resolving]

NARRATIVE: CASE EVENT DATE: 201812
